FAERS Safety Report 9200153 (Version 1)
Quarter: 2013Q1

REPORT INFORMATION
  Report Type: Report from Study
  Country: US (occurrence: US)
  Receive Date: 20130329
  Receipt Date: 20130329
  Transmission Date: 20140127
  Serious: Yes (Hospitalization, Other)
  Sender: FDA-Public Use
  Company Number: US-ABBOTT-13P-163-1051154-00

PATIENT
  Age: 48 Year
  Sex: Male
  Weight: 96.7 kg

DRUGS (6)
  1. TRILIPIX [Suspect]
     Indication: BLOOD TRIGLYCERIDES INCREASED
     Dates: start: 20110405, end: 201302
  2. GEMFIBROZIL [Concomitant]
     Indication: BLOOD TRIGLYCERIDES INCREASED
  3. LISINOPRIL [Concomitant]
     Indication: BLOOD PRESSURE
  4. GLYBURIDE [Concomitant]
     Indication: DIABETES MELLITUS
  5. SIMVASTATIN [Concomitant]
     Indication: BLOOD CHOLESTEROL INCREASED
  6. AMLOPIDINE [Concomitant]
     Indication: HYPERTENSION

REACTIONS (2)
  - Venous insufficiency [Unknown]
  - Pulmonary embolism [Recovered/Resolved]
